FAERS Safety Report 4310853-3 (Version None)
Quarter: 2004Q1

REPORT INFORMATION
  Report Type: 
  Country: None (occurrence: None)
  Receive Date: 20040304
  Receipt Date: 20040224
  Transmission Date: 20041129
  Serious: Yes (Other)
  Sender: FDA-Public Use
  Company Number: PHNU2004DE00993

PATIENT
  Age: 6 Year
  Sex: Female

DRUGS (3)
  1. SANDIMMUNE [Suspect]
     Indication: IMMUNODEFICIENCY COMMON VARIABLE
     Route: 048
     Dates: start: 20031001, end: 20031101
  2. ZITHROMAX [Concomitant]
  3. IMMUNE GLOBULIN INTRAVENOUS (HUMAN) [Concomitant]

REACTIONS (2)
  - CD4 LYMPHOCYTES DECREASED [None]
  - CONDITION AGGRAVATED [None]
